FAERS Safety Report 13269193 (Version 1)
Quarter: 2017Q1

REPORT INFORMATION
  Report Type: Spontaneous
  Country: JP (occurrence: JP)
  Receive Date: 20170224
  Receipt Date: 20170224
  Transmission Date: 20170428
  Serious: Yes (Death, Other)
  Sender: FDA-Public Use
  Company Number: JP-PFIZER INC-2016500111

PATIENT
  Age: 84 Year
  Sex: Male

DRUGS (7)
  1. PHENYTOIN. [Concomitant]
     Active Substance: PHENYTOIN
     Dosage: UNK
     Route: 048
  2. WARFARIN POTASSIUM [Concomitant]
     Active Substance: WARFARIN POTASSIUM
     Dosage: 0.5 MG, UNK
     Route: 048
     Dates: start: 20161029, end: 20161114
  3. CELECOX [Suspect]
     Active Substance: CELECOXIB
     Indication: ARTHRALGIA
     Dosage: 200 MG, 1X/DAY
     Route: 048
     Dates: start: 20161014, end: 20161025
  4. CELECOX [Suspect]
     Active Substance: CELECOXIB
     Dosage: 200 MG, 1X/DAY
     Route: 048
     Dates: end: 20161127
  5. WARFARIN POTASSIUM [Concomitant]
     Active Substance: WARFARIN POTASSIUM
     Dosage: 1 MG, UNK
     Route: 048
     Dates: start: 20161022, end: 20161028
  6. WARFARIN POTASSIUM [Concomitant]
     Active Substance: WARFARIN POTASSIUM
     Dosage: UNK
     Route: 048
     Dates: start: 20161008, end: 20161021
  7. KAYTWO [Concomitant]
     Active Substance: MENATETRENONE
     Indication: INTERNATIONAL NORMALISED RATIO INCREASED
     Dosage: UNK UNK, UNKNOWN FREQ.
     Route: 065

REACTIONS (3)
  - International normalised ratio increased [Unknown]
  - Endocarditis [Fatal]
  - Atrial thrombosis [Unknown]

NARRATIVE: CASE EVENT DATE: 20161021
